FAERS Safety Report 4873310-1 (Version None)
Quarter: 2005Q4

REPORT INFORMATION
  Report Type: 
  Country: None (occurrence: None)
  Receive Date: 20051201
  Receipt Date: 20050804
  Transmission Date: 20060501
  Serious: No
  Sender: FDA-Public Use
  Company Number: 2005PV000895

PATIENT
  Age: 60 Year
  Sex: Female
  Weight: 83.9154 kg

DRUGS (5)
  1. BYETTA [Suspect]
     Indication: DIABETES MELLITUS NON-INSULIN-DEPENDENT
     Dosage: SEE IMAGE
     Route: 058
     Dates: start: 20050715
  2. ACTOS [Concomitant]
  3. SYNTHROID [Concomitant]
  4. ENALAPRIL [Concomitant]
  5. ALLEGRA [Concomitant]

REACTIONS (2)
  - BLOOD GLUCOSE INCREASED [None]
  - GLYCOSYLATED HAEMOGLOBIN INCREASED [None]
